FAERS Safety Report 9226363 (Version 2)
Quarter: 2013Q2

REPORT INFORMATION
  Report Type: Spontaneous
  Country: US (occurrence: US)
  Receive Date: 20130411
  Receipt Date: 20130528
  Transmission Date: 20140414
  Serious: Yes (Hospitalization)
  Sender: FDA-Public Use
  Company Number: US-ABBOTT-13P-163-1071996-00

PATIENT
  Age: 58 Year
  Sex: Female
  Weight: 64.01 kg

DRUGS (2)
  1. HUMIRA [Suspect]
     Indication: CROHN^S DISEASE
     Dates: start: 20121009, end: 20130513
  2. HUMIRA [Suspect]

REACTIONS (2)
  - Small intestinal obstruction [Recovered/Resolved]
  - Abdominal distension [Unknown]
